FAERS Safety Report 4516883-0 (Version None)
Quarter: 2004Q4

REPORT INFORMATION
  Report Type: 
  Country: None (occurrence: None)
  Receive Date: 20041029
  Receipt Date: 20040909
  Transmission Date: 20050328
  Serious: No
  Sender: FDA-Public Use
  Company Number: 2004-120276-NL

PATIENT
  Age: 28 Year
  Sex: Female
  Weight: 54 kg

DRUGS (1)
  1. NUVARING [Suspect]
     Indication: CONTRACEPTION
     Dosage: DF DAILY, VAGINAL
     Route: 067
     Dates: start: 20040823

REACTIONS (5)
  - ABDOMINAL DISTENSION [None]
  - ABDOMINAL PAIN [None]
  - MEDICAL DEVICE DISCOMFORT [None]
  - METRORRHAGIA [None]
  - WEIGHT INCREASED [None]
